FAERS Safety Report 11632327 (Version 1)
Quarter: 2015Q4

REPORT INFORMATION
  Report Type: Spontaneous
  Country: HU (occurrence: HU)
  Receive Date: 20151015
  Receipt Date: 20151015
  Transmission Date: 20160304
  Serious: Yes (Hospitalization, Other)
  Sender: FDA-Public Use
  Company Number: HU-ACTAVIS-2015-21851

PATIENT
  Age: 78 Year
  Sex: Female

DRUGS (2)
  1. METFORMIN (UNKNOWN) [Suspect]
     Active Substance: METFORMIN HYDROCHLORIDE
     Indication: TYPE 2 DIABETES MELLITUS
     Dosage: 500 MG, BID
     Route: 065
  2. GLICLAZIDE (UNKNOWN) [Suspect]
     Active Substance: GLICLAZIDE
     Indication: TYPE 2 DIABETES MELLITUS
     Dosage: 30 MG, UNKNOWN
     Route: 065

REACTIONS (3)
  - Bundle branch block left [Unknown]
  - Atrioventricular block complete [Recovered/Resolved]
  - Hypoglycaemia [Recovered/Resolved]
